FAERS Safety Report 11590984 (Version 2)
Quarter: 2015Q4

REPORT INFORMATION
  Report Type: Other
  Country: IT (occurrence: IT)
  Receive Date: 20151003
  Receipt Date: 20151005
  Transmission Date: 20160304
  Serious: Yes (Life-Threatening)
  Sender: FDA-Public Use
  Company Number: IT-SUN PHARMACEUTICAL INDUSTRIES LTD-2013SUN04844

PATIENT

DRUGS (2)
  1. XELODA [Concomitant]
     Active Substance: CAPECITABINE
     Indication: RECTAL CANCER
     Dosage: 6 UT, UNK
     Route: 048
     Dates: start: 20130724, end: 20130814
  2. OXALIPLATINO SUN 5 MG/ML, CONCENTRATO PER SOLUZIONE PER INFUSIONE [Suspect]
     Active Substance: OXALIPLATIN
     Indication: RECTAL CANCER
     Dosage: 200 MG, CYCLICAL
     Route: 042
     Dates: start: 20130724

REACTIONS (5)
  - Dyspnoea [Unknown]
  - Agitation [Unknown]
  - Oedema mouth [Unknown]
  - Pharyngeal oedema [Unknown]
  - Oxygen saturation decreased [Unknown]

NARRATIVE: CASE EVENT DATE: 20130814
